FAERS Safety Report 6487974-2 (Version None)
Quarter: 2009Q4

REPORT INFORMATION
  Report Type: 
  Country: None (occurrence: None)
  Receive Date: 20091209
  Receipt Date: 20091209
  Transmission Date: 20100525
  Serious: Yes (Hospitalization)
  Sender: FDA-Public Use
  Company Number: None

PATIENT
  Age: 19 Year
  Sex: Male
  Weight: 81 kg

DRUGS (2)
  1. DEXTROMETHORPHAN/GUAIFENESIN [Suspect]
     Indication: COUGH
     Dosage: 480 MG ONCE PO
     Route: 048
     Dates: start: 20091005, end: 20091203
  2. DEXTROMETHORPHAN/GUAIFENESIN [Suspect]
     Indication: SINUSITIS
     Dosage: 480 MG ONCE PO
     Route: 048
     Dates: start: 20091005, end: 20091203

REACTIONS (7)
  - APHASIA [None]
  - ATAXIA [None]
  - CONFUSIONAL STATE [None]
  - INCORRECT DOSE ADMINISTERED [None]
  - INTENTIONAL DRUG MISUSE [None]
  - NAUSEA [None]
  - VOMITING [None]
